FAERS Safety Report 16080003 (Version 4)
Quarter: 2019Q3

REPORT INFORMATION
  Report Type: Report from Study
  Country: US (occurrence: US)
  Receive Date: 20190315
  Receipt Date: 20190805
  Transmission Date: 20191004
  Serious: Yes (Death, Hospitalization)
  Sender: FDA-Public Use
  Company Number: US-ACTELION-A-NJ2019-187663

PATIENT
  Age: 54 Year
  Sex: Male
  Weight: 90.7 kg

DRUGS (4)
  1. UPTRAVI [Suspect]
     Active Substance: SELEXIPAG
     Dosage: 1000 MCG, BID
     Route: 048
  2. UPTRAVI [Suspect]
     Active Substance: SELEXIPAG
     Indication: PULMONARY ARTERIAL HYPERTENSION
     Dosage: 1200 MCG, BID
     Route: 048
  3. UPTRAVI [Suspect]
     Active Substance: SELEXIPAG
     Dosage: 1400 MCG, BID
     Route: 048
  4. LETAIRIS [Concomitant]
     Active Substance: AMBRISENTAN

REACTIONS (15)
  - Urinary incontinence [Unknown]
  - Adverse reaction [Unknown]
  - Gout [Unknown]
  - Oedema [Unknown]
  - Dyspnoea [Unknown]
  - Muscle spasms [Unknown]
  - Condition aggravated [Unknown]
  - Discomfort [Unknown]
  - Insomnia [Unknown]
  - Diarrhoea [Unknown]
  - Headache [Unknown]
  - Death [Fatal]
  - Fluid overload [Unknown]
  - Abdominal pain upper [Unknown]
  - Nausea [Unknown]

NARRATIVE: CASE EVENT DATE: 20190509
